FAERS Safety Report 10046293 (Version 1)
Quarter: 2014Q1

REPORT INFORMATION
  Report Type: Spontaneous
  Country: US (occurrence: US)
  Receive Date: 20140331
  Receipt Date: 20140331
  Transmission Date: 20141002
  Serious: No
  Sender: FDA-Public Use
  Company Number: US-BIOGENIDEC-2014BI027031

PATIENT
  Age: 57 Year
  Sex: Female

DRUGS (6)
  1. TECFIDERA [Suspect]
     Indication: MULTIPLE SCLEROSIS
     Route: 048
  2. TECFIDERA [Suspect]
     Indication: MULTIPLE SCLEROSIS
     Route: 048
     Dates: start: 20140310
  3. AMANTADINE HCL [Concomitant]
  4. FERROUS GLUCONATE [Concomitant]
  5. FLUOXETINE HCL [Concomitant]
  6. TRIAMTERENE-HCTZ [Concomitant]

REACTIONS (3)
  - Intentional underdose [Unknown]
  - Nausea [Recovered/Resolved]
  - Diarrhoea [Recovered/Resolved]
